FAERS Safety Report 5831711-9 (Version None)
Quarter: 2008Q3

REPORT INFORMATION
  Report Type: 
  Country: None (occurrence: None)
  Receive Date: 20080803
  Receipt Date: 20080722
  Transmission Date: 20090109
  Serious: Yes (Other)
  Sender: FDA-Public Use
  Company Number: PHHY2008GB13175

PATIENT
  Age: 21 Year
  Sex: Female

DRUGS (1)
  1. ELIDEL [Suspect]
     Indication: SKIN DISORDER
     Dosage: UNK
     Dates: start: 20080603, end: 20080618

REACTIONS (1)
  - VARICELLA [None]
